FAERS Safety Report 25568898 (Version 1)
Quarter: 2025Q3

REPORT INFORMATION
  Report Type: Spontaneous
  Country: US (occurrence: US)
  Receive Date: 20250716
  Receipt Date: 20250716
  Transmission Date: 20251021
  Serious: No
  Sender: NOVO NORDISK
  Company Number: US-NOVOPROD-1346101

PATIENT
  Age: 74 Year
  Sex: Female

DRUGS (2)
  1. OZEMPIC [Suspect]
     Active Substance: SEMAGLUTIDE
     Indication: Obesity
     Dates: start: 202209
  2. OZEMPIC [Suspect]
     Active Substance: SEMAGLUTIDE
     Indication: Diabetes mellitus

REACTIONS (7)
  - Nasopharyngitis [Not Recovered/Not Resolved]
  - COVID-19 [Unknown]
  - Pain [Recovered/Resolved]
  - Nausea [Recovered/Resolved]
  - Abdominal pain upper [Unknown]
  - Blood glucose increased [Unknown]
  - Abdominal pain upper [Unknown]

NARRATIVE: CASE EVENT DATE: 20240101
